FAERS Safety Report 7898552-2 (Version None)
Quarter: 2011Q4

REPORT INFORMATION
  Report Type: 
  Country: None (occurrence: None)
  Receive Date: 20111107
  Receipt Date: 20111031
  Transmission Date: 20120403
  Serious: Yes (Hospitalization)
  Sender: FDA-Public Use
  Company Number: MX-SANOFI-AVENTIS-2011SA071824

PATIENT
  Age: 44 Year
  Sex: Female
  Weight: 64 kg

DRUGS (8)
  1. ARAVA [Suspect]
     Indication: RHEUMATOID ARTHRITIS
     Route: 048
     Dates: start: 20100501, end: 20110101
  2. METHOTREXATE [Concomitant]
     Indication: RHEUMATOID ARTHRITIS
     Route: 048
     Dates: start: 20080101
  3. FOLIC ACID [Concomitant]
     Indication: VITAMIN SUPPLEMENTATION
     Route: 048
  4. OMEPRAZOLE [Concomitant]
     Indication: COLITIS
     Route: 048
     Dates: start: 20100101
  5. CALCORT [Concomitant]
     Indication: RHEUMATOID ARTHRITIS
     Route: 048
     Dates: start: 20080101
  6. CALCIUM [Concomitant]
     Indication: VITAMIN SUPPLEMENTATION
     Route: 048
  7. ARAVA [Suspect]
     Route: 048
     Dates: start: 20110401
  8. OMEPRAZOLE [Concomitant]
     Indication: GASTRITIS
     Route: 048
     Dates: start: 20100101

REACTIONS (2)
  - ABDOMINAL PAIN UPPER [None]
  - HYSTERECTOMY [None]
